FAERS Safety Report 6160720-8 (Version None)
Quarter: 2009Q2

REPORT INFORMATION
  Report Type: 
  Country: None (occurrence: None)
  Receive Date: 20090420
  Receipt Date: 20090410
  Transmission Date: 20091009
  Serious: Yes (Hospitalization)
  Sender: FDA-Public Use
  Company Number: US-PFIZER INC-2009197303

PATIENT
  Age: 56 Year
  Sex: Female
  Weight: 91.625 kg

DRUGS (4)
  1. AMLODIPINE BESYLATE [Suspect]
     Dates: start: 20070901
  2. FENOFIBRATE [Concomitant]
  3. CRESTOR [Concomitant]
  4. VALSARTAN [Concomitant]

REACTIONS (2)
  - ARTERIAL OCCLUSIVE DISEASE [None]
  - DRUG DOSE OMISSION [None]
